FAERS Safety Report 18724571 (Version 1)
Quarter: 2021Q1

REPORT INFORMATION
  Report Type: Spontaneous
  Country: AR (occurrence: AR)
  Receive Date: 20210111
  Receipt Date: 20210111
  Transmission Date: 20210419
  Serious: Yes (Other)
  Sender: FDA-Public Use
  Company Number: AR-PFIZER INC-2021010425

PATIENT
  Age: 77 Year
  Sex: Female

DRUGS (1)
  1. IBRANCE [Suspect]
     Active Substance: PALBOCICLIB
     Indication: BREAST CANCER METASTATIC
     Dosage: 125 MG, CYCLIC (DAILY, SCHEME 3X1)
     Dates: start: 20190312

REACTIONS (12)
  - Platelet count decreased [Unknown]
  - Osteomyelitis [Unknown]
  - Muscular weakness [Unknown]
  - Feeling hot [Unknown]
  - Dyspnoea [Unknown]
  - Fracture [Unknown]
  - White blood cell count decreased [Unknown]
  - Fatigue [Unknown]
  - Fear [Unknown]
  - Memory impairment [Unknown]
  - Swelling [Unknown]
  - Pain [Unknown]
